FAERS Safety Report 4879162-8 (Version None)
Quarter: 2006Q1

REPORT INFORMATION
  Report Type: 
  Country: None (occurrence: None)
  Receive Date: 20060112
  Receipt Date: 20051215
  Transmission Date: 20060701
  Serious: Yes (Hospitalization, Disabling)
  Sender: FDA-Public Use
  Company Number: BE-ROCHE-428863

PATIENT
  Age: 62 Year
  Sex: Male

DRUGS (33)
  1. MYCOPHENOLATE MOFETIL [Suspect]
     Route: 042
     Dates: start: 20051029, end: 20051127
  2. MYCOPHENOLATE MOFETIL [Suspect]
     Dosage: REASON FOR CHANGE SPECIFIED AS ^MISTAKE^.
     Route: 048
     Dates: start: 20051128, end: 20051130
  3. MYCOPHENOLATE MOFETIL [Suspect]
     Route: 048
     Dates: start: 20051201
  4. TACROLIMUS [Suspect]
     Dosage: DOSING REPORTED AS 4MG + 2MG
     Route: 048
     Dates: start: 20051029, end: 20051029
  5. TACROLIMUS [Suspect]
     Dosage: ADJUSTMENT TO REACH PRE-DEFINED TARGET LEVELS.
     Route: 048
     Dates: start: 20051030, end: 20051115
  6. TACROLIMUS [Suspect]
     Dosage: ADJUSTMENT TO REACH PRE-DEFINED TARGET LEVELS.
     Route: 048
     Dates: start: 20051116, end: 20051130
  7. TACROLIMUS [Suspect]
     Dosage: ADJUSTMENT TO REACH PRE-DEFINED TARGET LEVELS.
     Route: 048
     Dates: start: 20051201
  8. METHYLPREDNISOLONE [Suspect]
     Route: 065
     Dates: start: 20051029, end: 20051029
  9. METHYLPREDNISOLONE [Suspect]
     Dosage: TAPER ACCORDING TO LOCAL PROTOCOL.
     Route: 065
     Dates: start: 20051030, end: 20051117
  10. METHYLPREDNISOLONE [Suspect]
     Dosage: TAPER ACCORDING TO LOCAL PROTOCOL.
     Route: 065
     Dates: start: 20051118, end: 20051214
  11. METHYLPREDNISOLONE [Suspect]
     Dosage: TAPER ACCORDING TO LOCAL PROTOCOL.
     Route: 065
     Dates: start: 20051215
  12. PARACETAMOL [Concomitant]
     Indication: PAIN PROPHYLAXIS
     Dates: start: 20051029, end: 20051116
  13. FUROSEMIDE [Concomitant]
     Indication: OEDEMA
     Dates: start: 20051029, end: 20051214
  14. DUOVENT [Concomitant]
     Dates: start: 20051029, end: 20051110
  15. LORAZEPAM [Concomitant]
     Indication: SLEEP DISORDER
     Dates: start: 20051029, end: 20051103
  16. ENOXAPARIN SODIUM [Concomitant]
     Dates: start: 20051031, end: 20051102
  17. NADROPARINE [Concomitant]
     Dates: start: 20051103
  18. METOPROLOL TARTRATE [Concomitant]
     Indication: HYPERTENSION
     Dosage: DRUG NAME REPORTED AS ^METOPROLOLTARTRAAT^
     Dates: start: 20051031, end: 20051108
  19. GANCICLOVIR [Concomitant]
     Dates: start: 20051031, end: 20051107
  20. OMEPRAZOLE [Concomitant]
     Indication: REFLUX OESOPHAGITIS
     Dates: start: 20051031
  21. AMLODIPINE [Concomitant]
     Indication: HYPERTENSION
     Dates: start: 20051101, end: 20051107
  22. INSULINE [Concomitant]
     Dates: start: 20050615
  23. LOPERAMIDE [Concomitant]
     Indication: DIARRHOEA
     Dates: start: 20051107, end: 20051118
  24. NATRIUMPOLYSTYRENSULFONAT [Concomitant]
     Dates: start: 20051104, end: 20051114
  25. SORBITOL. [Concomitant]
     Dates: start: 20051106, end: 20051112
  26. VALGANCICLOVIR [Concomitant]
     Dates: start: 20051108
  27. DILTIAZEM HYDROCHLORIDE [Concomitant]
     Indication: HYPERTENSION
     Dates: start: 20051108, end: 20051122
  28. AMOXICILLIN [Concomitant]
     Indication: COUGH
     Dates: start: 20051108, end: 20051116
  29. CALCIUMPOLYSTYREENSULFONAAT [Concomitant]
     Dates: start: 20051109
  30. MAGNESIUM [Concomitant]
     Indication: HYPOMAGNESAEMIA
     Dates: start: 20051110
  31. FLUCONAZOLE [Concomitant]
     Indication: INFECTION PROPHYLAXIS
     Dates: start: 20051029
  32. BISOPROLOL FUMARATE [Concomitant]
     Indication: HYPERTENSION
     Dosage: DRUG NAME REPORTED AS ^BISOPROLOLFUMARAAT^.
     Dates: start: 20051122, end: 20051128
  33. ACETYLSALICYLZUUR [Concomitant]
     Dates: start: 20051122

REACTIONS (1)
  - CEREBROVASCULAR ACCIDENT [None]
